FAERS Safety Report 25397350 (Version 2)
Quarter: 2025Q2

REPORT INFORMATION
  Report Type: Spontaneous
  Country: US (occurrence: US)
  Receive Date: 20250604
  Receipt Date: 20250611
  Transmission Date: 20250717
  Serious: No
  Sender: LUNDBECK
  Company Number: US-LUNDBECK-DKLU4015171

PATIENT
  Age: 71 Year
  Sex: Female

DRUGS (3)
  1. VYEPTI [Suspect]
     Active Substance: EPTINEZUMAB-JJMR
     Indication: Product used for unknown indication
     Route: 041
  2. VYEPTI [Suspect]
     Active Substance: EPTINEZUMAB-JJMR
     Route: 041
  3. REYVOW [Concomitant]
     Active Substance: LASMIDITAN
     Indication: Product used for unknown indication

REACTIONS (2)
  - Therapeutic response shortened [Unknown]
  - Cognitive disorder [Unknown]
